FAERS Safety Report 10636959 (Version 1)
Quarter: 2014Q4

REPORT INFORMATION
  Report Type: Spontaneous
  Country: GB (occurrence: GB)
  Receive Date: 20141208
  Receipt Date: 20141208
  Transmission Date: 20150529
  Serious: Yes (Disabling, Other)
  Sender: FDA-Public Use
  Company Number: GB-AUROBINDO-AUR-APL-2014-12740

PATIENT
  Sex: Male

DRUGS (6)
  1. MIRTAZAPINE 15MG [Interacting]
     Active Substance: MIRTAZAPINE
     Dosage: 45 MG, UNK
     Route: 065
     Dates: start: 201308
  2. LORAZEPAM. [Interacting]
     Active Substance: LORAZEPAM
     Indication: PRODUCT USED FOR UNKNOWN INDICATION
     Dosage: 3 MG, UNK
     Route: 065
  3. QUETIAPINE FUMARATE. [Concomitant]
     Active Substance: QUETIAPINE FUMARATE
     Indication: PRODUCT USED FOR UNKNOWN INDICATION
     Dosage: UNK
     Route: 065
  4. MIRTAZAPINE 15MG [Suspect]
     Active Substance: MIRTAZAPINE
     Indication: DEPRESSION
     Dosage: 15 MG, UNK
     Route: 065
     Dates: start: 201306, end: 2013
  5. MIRTAZAPINE 15MG [Interacting]
     Active Substance: MIRTAZAPINE
     Indication: ANXIETY
     Dosage: 30 MG, UNK
     Route: 065
     Dates: start: 201307, end: 2013
  6. CHLORPROMAZINE [Interacting]
     Active Substance: CHLORPROMAZINE
     Indication: PRODUCT USED FOR UNKNOWN INDICATION
     Dosage: 75 MG, UNK
     Route: 065

REACTIONS (11)
  - Fear [Unknown]
  - Panic reaction [Unknown]
  - Drug withdrawal syndrome [Not Recovered/Not Resolved]
  - Stress [Unknown]
  - Restlessness [Unknown]
  - Pain [Not Recovered/Not Resolved]
  - Impaired work ability [Unknown]
  - Agitation [Unknown]
  - Drug interaction [Not Recovered/Not Resolved]
  - General physical health deterioration [Unknown]
  - Anxiety [Unknown]
